FAERS Safety Report 9105531 (Version 4)
Quarter: 2013Q3

REPORT INFORMATION
  Report Type: Spontaneous
  Country: BH (occurrence: BH)
  Receive Date: 20130220
  Receipt Date: 20130823
  Transmission Date: 20140515
  Serious: Yes (Life-Threatening, Hospitalization, Disabling)
  Sender: FDA-Public Use
  Company Number: BH-SANOFI-AVENTIS-2013SA014418

PATIENT
  Sex: Male

DRUGS (2)
  1. PLAVIX [Suspect]
     Indication: STENT PLACEMENT
     Route: 048
     Dates: start: 20130201
  2. ASPIRIN [Concomitant]

REACTIONS (3)
  - Thrombosis in device [Recovering/Resolving]
  - Product quality issue [Unknown]
  - Drug ineffective [Unknown]
